FAERS Safety Report 8806644 (Version 1)
Quarter: 2012Q4

REPORT INFORMATION
  Report Type: Spontaneous
  Country: US (occurrence: None)
  Receive Date: 20120920
  Receipt Date: 20120920
  Transmission Date: 20130627
  Serious: No
  Sender: FDA-Public Use
  Company Number: None

PATIENT

DRUGS (2)
  1. CYMBALTA [Suspect]
     Dates: start: 20090405
  2. CYMBALTA [Suspect]
     Dates: start: 20120405

REACTIONS (2)
  - Paraesthesia [None]
  - Social avoidant behaviour [None]
